FAERS Safety Report 19349786 (Version 1)
Quarter: 2021Q2

REPORT INFORMATION
  Report Type: Spontaneous
  Country: GB (occurrence: GB)
  Receive Date: 20210601
  Receipt Date: 20210601
  Transmission Date: 20210717
  Serious: Yes (Disabling)
  Sender: FDA-Public Use
  Company Number: None

PATIENT
  Age: 29 Year
  Sex: Male
  Weight: 72 kg

DRUGS (1)
  1. ROGAINE [Suspect]
     Active Substance: MINOXIDIL
     Indication: ALOPECIA

REACTIONS (10)
  - Anxiety [None]
  - Loss of libido [None]
  - Panic attack [None]
  - Depression [None]
  - Organic erectile dysfunction [None]
  - Feeling abnormal [None]
  - Insomnia [None]
  - Erectile dysfunction [None]
  - Sperm concentration decreased [None]
  - Dysuria [None]

NARRATIVE: CASE EVENT DATE: 20200228
